FAERS Safety Report 10305526 (Version 1)
Quarter: 2014Q3

REPORT INFORMATION
  Report Type: Spontaneous
  Country: CA (occurrence: None)
  Receive Date: 20140711
  Receipt Date: 20140711
  Transmission Date: 20150326
  Serious: Yes (Hospitalization)
  Sender: FDA-Public Use
  Company Number: None

PATIENT
  Age: 68 Year
  Sex: Female
  Weight: 59.88 kg

DRUGS (6)
  1. CO-ENZYME Q 10 [Concomitant]
  2. CALCIUM MAGNESIUM [Concomitant]
  3. MAGNESIUM CHELATE [Concomitant]
  4. CLEAR LAX [Suspect]
     Active Substance: POLYETHYLENE GLYCOL 3350
     Indication: CONSTIPATION
     Dosage: 2 DOSES, ONCE DAILY, TAKEN BY MOUTH
     Route: 048
     Dates: start: 20140128, end: 20140129
  5. OMEGA 3 [Concomitant]
     Active Substance: OMEGA-3 FATTY ACIDS
  6. VITAMIN D [Concomitant]
     Active Substance: CHOLECALCIFEROL

REACTIONS (7)
  - Gastrooesophageal reflux disease [None]
  - Toxicity to various agents [None]
  - Palpitations [None]
  - Memory impairment [None]
  - Diarrhoea [None]
  - Adverse drug reaction [None]
  - Throat tightness [None]

NARRATIVE: CASE EVENT DATE: 20140128
